FAERS Safety Report 6165312-2 (Version None)
Quarter: 2009Q2

REPORT INFORMATION
  Report Type: 
  Country: None (occurrence: None)
  Receive Date: 20090423
  Receipt Date: 20090415
  Transmission Date: 20091009
  Serious: Yes (Hospitalization)
  Sender: FDA-Public Use
  Company Number: AU-VALEANT-2009VX000637

PATIENT
  Sex: Female

DRUGS (2)
  1. DIHYDROERGOTAMINE MESYLATE [Suspect]
     Indication: MIGRAINE
     Route: 065
  2. CELEBREX [Suspect]
     Route: 065

REACTIONS (1)
  - HEPATIC FAILURE [None]
